FAERS Safety Report 19121028 (Version 1)
Quarter: 2021Q2

REPORT INFORMATION
  Report Type: Spontaneous
  Country: US (occurrence: US)
  Receive Date: 20210412
  Receipt Date: 20210412
  Transmission Date: 20210717
  Serious: Yes (Hospitalization, Other)
  Sender: FDA-Public Use
  Company Number: US-BIO PRODUCTS LABORATORY LTD-2109191

PATIENT
  Age: 72 Year
  Sex: Male

DRUGS (3)
  1. HUMAN NORMAL IMMUNOGLOBULIN [Suspect]
     Active Substance: HUMAN IMMUNOGLOBULIN G
     Indication: ILL-DEFINED DISORDER
     Route: 042
  2. PEMBROLUZIMAB [Concomitant]
     Active Substance: PEMBROLIZUMAB
  3. RITUXIMAB. [Concomitant]
     Active Substance: RITUXIMAB

REACTIONS (4)
  - Off label use [Unknown]
  - Organising pneumonia [Unknown]
  - Erythema multiforme [Unknown]
  - Diarrhoea [Unknown]
